FAERS Safety Report 5506674-6 (Version None)
Quarter: 2007Q4

REPORT INFORMATION
  Report Type: 
  Country: None (occurrence: None)
  Receive Date: 20071105
  Receipt Date: 20071025
  Transmission Date: 20080405
  Serious: Yes (Other)
  Sender: FDA-Public Use
  Company Number: CA-WYE-G00526507

PATIENT
  Age: 22 Month
  Sex: Male
  Weight: 12.5 kg

DRUGS (5)
  1. GEMTUZUMAB OZOGAMICIN [Suspect]
     Indication: BLAST CRISIS IN MYELOGENOUS LEUKAEMIA
     Route: 042
     Dates: start: 20071013, end: 20071013
  2. PETHIDINE HYDROCHLORIDE [Concomitant]
  3. HYDROCORTISONE [Concomitant]
  4. ACETAMINOPHEN [Concomitant]
  5. DIPHENHYDRAMINE HCL [Concomitant]

REACTIONS (4)
  - CHILLS [None]
  - INFUSION RELATED REACTION [None]
  - PYREXIA [None]
  - TACHYCARDIA [None]
